FAERS Safety Report 7022237-8 (Version None)
Quarter: 2010Q3

REPORT INFORMATION
  Report Type: 
  Country: None (occurrence: None)
  Receive Date: 20100930
  Receipt Date: 20100918
  Transmission Date: 20110219
  Serious: Yes (Hospitalization)
  Sender: FDA-Public Use
  Company Number: US-ELI_LILLY_AND_COMPANY-US201007004334

PATIENT
  Sex: Male

DRUGS (3)
  1. ZYPREXA [Suspect]
     Indication: SCHIZOAFFECTIVE DISORDER BIPOLAR TYPE
     Dosage: 20 MG, DAILY (1/D)
  2. RISPERDAL [Concomitant]
     Dosage: 2 MG, 2/D
  3. RISPERDAL CONSTA [Concomitant]
     Dosage: 50 MG, OTHER
     Route: 030

REACTIONS (4)
  - ABNORMAL BEHAVIOUR [None]
  - BLOOD PROLACTIN INCREASED [None]
  - GYNAECOMASTIA [None]
  - OVERDOSE [None]
